FAERS Safety Report 7522457-X (Version None)
Quarter: 2011Q2

REPORT INFORMATION
  Report Type: 
  Country: None (occurrence: None)
  Receive Date: 20110603
  Receipt Date: 20110531
  Transmission Date: 20111010
  Serious: Yes (Hospitalization, Other)
  Sender: FDA-Public Use
  Company Number: BR-ABBOTT-11P-020-0728332-00

PATIENT
  Sex: Female
  Weight: 70 kg

DRUGS (3)
  1. CALCORT [Concomitant]
     Indication: CROHN'S DISEASE
     Route: 048
  2. HUMIRA [Suspect]
     Indication: CROHN'S DISEASE
     Route: 058
     Dates: start: 20090814, end: 20110201
  3. PREDNISONE [Concomitant]
     Indication: CROHN'S DISEASE
     Route: 048
     Dates: start: 20110201

REACTIONS (5)
  - INTESTINAL PERFORATION [None]
  - DRUG INEFFECTIVE [None]
  - PYREXIA [None]
  - PAIN [None]
  - PROCEDURAL PAIN [None]
